FAERS Safety Report 13539378 (Version 2)
Quarter: 2017Q2

REPORT INFORMATION
  Report Type: Spontaneous
  Country: US (occurrence: US)
  Receive Date: 20170512
  Receipt Date: 20170602
  Transmission Date: 20170830
  Serious: Yes (Other)
  Sender: FDA-Public Use
  Company Number: US-PFIZER INC-2017205774

PATIENT
  Age: 80 Year
  Sex: Male
  Weight: 82 kg

DRUGS (1)
  1. VIAGRA [Suspect]
     Active Substance: SILDENAFIL CITRATE
     Indication: ERECTILE DYSFUNCTION
     Dosage: ONE 50MG TABLET BY MOUTH WHEN NEEDED
     Route: 048

REACTIONS (2)
  - Drug ineffective [Unknown]
  - Body height decreased [Unknown]

NARRATIVE: CASE EVENT DATE: 201704
